FAERS Safety Report 5571584-5 (Version None)
Quarter: 2007Q4

REPORT INFORMATION
  Report Type: 
  Country: None (occurrence: None)
  Receive Date: 20071221
  Receipt Date: 20071214
  Transmission Date: 20080405
  Serious: Yes (Death)
  Sender: FDA-Public Use
  Company Number: GB-BAXTER-2007BH008811

PATIENT
  Age: 14 Year
  Sex: Male
  Weight: 90 kg

DRUGS (8)
  1. SEVOFLURANE [Suspect]
     Indication: DRUG USE FOR UNKNOWN INDICATION
     Dosage: DOSE UNIT:UNKNOWN
     Route: 065
     Dates: start: 20070908, end: 20070908
  2. SUPRANE [Suspect]
     Indication: DRUG USE FOR UNKNOWN INDICATION
     Dosage: DOSE UNIT:UNKNOWN
     Route: 055
     Dates: start: 20070908, end: 20070908
  3. PROPOFOL [Concomitant]
     Route: 040
  4. FENTANYL [Concomitant]
     Route: 040
  5. DICLOFENAC [Concomitant]
     Route: 041
  6. ACETAMINOPHEN [Concomitant]
     Route: 041
  7. MORPHINE [Concomitant]
     Route: 040
  8. ONDANSETRON [Concomitant]
     Route: 040

REACTIONS (7)
  - BLOOD CALCIUM DECREASED [None]
  - BLOOD PHOSPHORUS INCREASED [None]
  - BLOOD POTASSIUM ABNORMAL [None]
  - CARDIAC ARREST [None]
  - CREATININE RENAL CLEARANCE DECREASED [None]
  - METABOLIC ACIDOSIS [None]
  - RHABDOMYOLYSIS [None]
